FAERS Safety Report 16223074 (Version 1)
Quarter: 2019Q2

REPORT INFORMATION
  Report Type: Spontaneous
  Country: US (occurrence: US)
  Receive Date: 20190422
  Receipt Date: 20190422
  Transmission Date: 20190711
  Serious: No
  Sender: FDA-Public Use
  Company Number: US-SA-2019SA109831

PATIENT
  Age: 39 Year
  Sex: Female

DRUGS (3)
  1. DUPIXENT [Suspect]
     Active Substance: DUPILUMAB
     Dosage: LOADING DOSE
     Route: 058
     Dates: start: 20190410
  2. DUPIXENT [Suspect]
     Active Substance: DUPILUMAB
     Dosage: MAINTENANCE DOSE
     Dates: start: 201903
  3. DUPIXENT [Suspect]
     Active Substance: DUPILUMAB
     Dosage: LOADING DOSE
     Route: 058

REACTIONS (1)
  - Off label use [Unknown]
